FAERS Safety Report 16333062 (Version 9)
Quarter: 2020Q2

REPORT INFORMATION
  Report Type: Spontaneous
  Country: CN (occurrence: CN)
  Receive Date: 20190520
  Receipt Date: 20200501
  Transmission Date: 20200713
  Serious: Yes (Death, Life-Threatening)
  Sender: FDA-Public Use
  Company Number: CN-CELGENEUS-CHN-20190506410

PATIENT
  Age: 78 Year
  Sex: Male
  Weight: 68.5 kg

DRUGS (68)
  1. METHYLPREDNISOLONE SODIUM SUCCINATE. [Concomitant]
     Active Substance: METHYLPREDNISOLONE SODIUM SUCCINATE
     Dosage: 80 MILLIGRAM
     Route: 041
     Dates: start: 20190509, end: 20190509
  2. TIGECYCLINE. [Concomitant]
     Active Substance: TIGECYCLINE
     Indication: ANTI-INFECTIVE THERAPY
     Dosage: 100 MILLIGRAM
     Route: 041
     Dates: start: 20190426
  3. PERINDOPRIL [Concomitant]
     Active Substance: PERINDOPRIL
     Indication: CARDIAC VALVE DISEASE
     Dosage: 4 MILLIGRAM
     Route: 048
     Dates: start: 20190424, end: 20190430
  4. VENETOCLAX. [Concomitant]
     Active Substance: VENETOCLAX
     Route: 048
     Dates: start: 20190503, end: 20190503
  5. FUROSEMIDE. [Concomitant]
     Active Substance: FUROSEMIDE
     Indication: CARDIAC VALVE DISEASE
     Dosage: 20 MILLIGRAM
     Route: 048
     Dates: start: 201904, end: 20190509
  6. SPIRONOLACTONE. [Concomitant]
     Active Substance: SPIRONOLACTONE
     Indication: CARDIAC VALVE DISEASE
  7. GLUCOSE [Concomitant]
     Active Substance: DEXTROSE
     Indication: BLOOD GLUCOSE ABNORMAL
     Dosage: 100 MILLILITER
     Route: 041
     Dates: start: 20190508, end: 20190508
  8. GLUCOSE [Concomitant]
     Active Substance: DEXTROSE
     Dosage: 400 MILLILITER
     Route: 041
     Dates: start: 20190509, end: 20190509
  9. POTASSIUM CHLORIDE. [Concomitant]
     Active Substance: POTASSIUM CHLORIDE
     Indication: HYPOKALAEMIA
     Dosage: 1.5 GRAM
     Route: 041
     Dates: start: 20190508, end: 20190508
  10. NORMAL SALINE SOLUTION [Concomitant]
     Indication: PROPHYLAXIS
     Route: 041
     Dates: start: 20190502, end: 20190502
  11. CASPOFUNGIN ACETATE. [Concomitant]
     Active Substance: CASPOFUNGIN ACETATE
     Indication: ANTI-INFECTIVE THERAPY
     Dosage: 70 MILLILITER
     Route: 041
     Dates: start: 20190509, end: 20190509
  12. CASPOFUNGIN ACETATE. [Concomitant]
     Active Substance: CASPOFUNGIN ACETATE
     Indication: INFECTION
  13. CASPOFUNGIN ACETATE. [Concomitant]
     Active Substance: CASPOFUNGIN ACETATE
     Indication: PNEUMONIA
  14. LIENAL POLYPEPTIDE [Concomitant]
     Indication: MALIGNANT TRANSFORMATION
     Dosage: 6 MILLILITER
     Route: 041
     Dates: start: 20190503
  15. METHYLPREDNISOLONE SODIUM SUCCINATE. [Concomitant]
     Active Substance: METHYLPREDNISOLONE SODIUM SUCCINATE
     Dosage: 20 MILLIGRAM
     Route: 041
     Dates: start: 20190505, end: 20190505
  16. NAPROXEN SODIUM. [Concomitant]
     Active Substance: NAPROXEN SODIUM
     Dosage: .275 GRAM
     Route: 041
     Dates: start: 20190504, end: 20190504
  17. PIPERACILLIN AND TAZOBACTAM [Concomitant]
     Active Substance: PIPERACILLIN SODIUM\TAZOBACTAM SODIUM
     Indication: ANTI-INFECTIVE THERAPY
     Dosage: 13.5 GRAM
     Route: 041
     Dates: start: 20190416, end: 20190418
  18. PIPERACILLIN AND TAZOBACTAM [Concomitant]
     Active Substance: PIPERACILLIN SODIUM\TAZOBACTAM SODIUM
     Indication: PNEUMONIA
  19. VORICONAZOLE. [Concomitant]
     Active Substance: VORICONAZOLE
     Indication: ANTI-INFECTIVE THERAPY
     Dosage: 400 MILLIGRAM
     Route: 048
     Dates: start: 20190426, end: 20190509
  20. PERINDOPRIL [Concomitant]
     Active Substance: PERINDOPRIL
     Indication: CORONARY ARTERY DISEASE
  21. FUROSEMIDE. [Concomitant]
     Active Substance: FUROSEMIDE
     Indication: PROPHYLAXIS
  22. GLUCOSE [Concomitant]
     Active Substance: DEXTROSE
     Dosage: 200 MILLILITER
     Route: 041
     Dates: start: 20190509, end: 20190509
  23. ALLOPURINOL. [Concomitant]
     Active Substance: ALLOPURINOL
     Indication: PROPHYLAXIS
     Dosage: .1 GRAM
     Route: 048
     Dates: start: 20190428, end: 20190509
  24. METHYLPREDNISOLONE SODIUM SUCCINATE. [Concomitant]
     Active Substance: METHYLPREDNISOLONE SODIUM SUCCINATE
     Dosage: 40 MILLIGRAM
     Route: 041
     Dates: start: 20190504, end: 20190505
  25. NAPROXEN SODIUM. [Concomitant]
     Active Substance: NAPROXEN SODIUM
     Indication: PYREXIA
     Dosage: .275 GRAM
     Route: 041
     Dates: start: 20190419, end: 20190420
  26. NAPROXEN SODIUM. [Concomitant]
     Active Substance: NAPROXEN SODIUM
     Indication: ANTIPYRESIS
     Dosage: .275 GRAM
     Route: 041
     Dates: start: 20190423, end: 20190423
  27. SULPERAZON [Concomitant]
     Active Substance: CEFOPERAZONE SODIUM\SULBACTAM SODIUM
     Indication: PNEUMONIA
     Dosage: 9 MILLIGRAM
     Route: 041
     Dates: start: 20190426, end: 20190427
  28. VENETOCLAX. [Concomitant]
     Active Substance: VENETOCLAX
     Route: 048
     Dates: start: 20190502, end: 20190502
  29. VENETOCLAX. [Concomitant]
     Active Substance: VENETOCLAX
     Route: 048
     Dates: start: 20190509, end: 20190509
  30. FUROSEMIDE. [Concomitant]
     Active Substance: FUROSEMIDE
     Indication: CORONARY ARTERY DISEASE
     Dosage: 20 MILLIGRAM
     Route: 048
     Dates: start: 20190424, end: 20190425
  31. SPIRONOLACTONE. [Concomitant]
     Active Substance: SPIRONOLACTONE
     Indication: CONGESTIVE CARDIOMYOPATHY
  32. POTASSIUM CHLORIDE. [Concomitant]
     Active Substance: POTASSIUM CHLORIDE
     Dosage: 3 GRAM
     Route: 041
     Dates: start: 20190509, end: 20190509
  33. CERNEVIT [Concomitant]
     Active Substance: VITAMINS
     Indication: DECREASED APPETITE
     Dosage: 1 IU (INTERNATIONAL UNIT)
     Route: 041
     Dates: start: 20190507, end: 20190508
  34. HYDROXYCARBAMIDE [Concomitant]
     Active Substance: HYDROXYUREA
     Dosage: 1.5 GRAM
     Route: 048
     Dates: start: 20190419, end: 20190421
  35. METHYLPREDNISOLONE SODIUM SUCCINATE. [Concomitant]
     Active Substance: METHYLPREDNISOLONE SODIUM SUCCINATE
     Indication: PYREXIA
     Dosage: 20 MILLIGRAM
     Route: 041
     Dates: start: 20190425, end: 20190425
  36. PERINDOPRIL [Concomitant]
     Active Substance: PERINDOPRIL
     Indication: CONGESTIVE CARDIOMYOPATHY
     Dosage: 4 MILLIGRAM
     Route: 048
     Dates: start: 20190430
  37. AMINOCAPROIC ACID AND SODIUM CHLORIDE [Concomitant]
     Indication: HAEMORRHAGE PROPHYLAXIS
     Dosage: 8 GRAM
     Route: 041
     Dates: start: 20190416, end: 20190509
  38. METOPROLOL TARTRATE. [Concomitant]
     Active Substance: METOPROLOL TARTRATE
     Indication: CONGESTIVE CARDIOMYOPATHY
  39. POTASSIUM CHLORIDE. [Concomitant]
     Active Substance: POTASSIUM CHLORIDE
     Indication: PROPHYLAXIS
     Dosage: 1.5 GRAM
     Route: 041
     Dates: start: 20190506, end: 20190507
  40. SODIUM CARBONATE [Concomitant]
     Active Substance: SODIUM CARBONATE
     Indication: PROPHYLAXIS
     Dosage: 100 MILLILITER
     Route: 041
     Dates: start: 20190502, end: 20190502
  41. FUROSEMIDE. [Concomitant]
     Active Substance: FUROSEMIDE
     Indication: CONGESTIVE CARDIOMYOPATHY
  42. GLUCOSE [Concomitant]
     Active Substance: DEXTROSE
     Indication: PROPHYLAXIS
     Dosage: 400 MILLILITER
     Route: 041
     Dates: start: 20190425, end: 20190428
  43. TIGECYCLINE. [Concomitant]
     Active Substance: TIGECYCLINE
     Indication: PNEUMONIA
  44. VORICONAZOLE. [Concomitant]
     Active Substance: VORICONAZOLE
     Indication: INFECTION
  45. EPINEPHRINE. [Concomitant]
     Active Substance: EPINEPHRINE
     Indication: RESUSCITATION
     Route: 065
  46. AZACITIDINE. [Suspect]
     Active Substance: AZACITIDINE
     Indication: ACUTE MYELOID LEUKAEMIA
     Dosage: 75 MILLIGRAM/SQ. METER
     Route: 058
     Dates: start: 20190501, end: 20190507
  47. METOPROLOL TARTRATE. [Concomitant]
     Active Substance: METOPROLOL TARTRATE
     Indication: CARDIAC VALVE DISEASE
  48. SPIRONOLACTONE. [Concomitant]
     Active Substance: SPIRONOLACTONE
     Indication: CORONARY ARTERY DISEASE
     Dosage: 20 MILLIGRAM
     Route: 048
     Dates: start: 20190424, end: 20190509
  49. INSULIN [Concomitant]
     Active Substance: INSULIN NOS
     Indication: HYDROTHERAPY
     Dosage: 30 IU (INTERNATIONAL UNIT)
     Route: 041
     Dates: start: 20190425, end: 20190428
  50. INSULIN [Concomitant]
     Active Substance: INSULIN NOS
     Indication: PROPHYLAXIS
     Dosage: 16 IU (INTERNATIONAL UNIT)
     Route: 041
     Dates: start: 20190508, end: 20190508
  51. POTASSIUM CHLORIDE. [Concomitant]
     Active Substance: POTASSIUM CHLORIDE
     Indication: HYDROTHERAPY
     Dosage: 1.5 GRAM
     Route: 041
     Dates: start: 20190425, end: 20190428
  52. HYDROXYCARBAMIDE [Concomitant]
     Active Substance: HYDROXYUREA
     Indication: LEUKOCYTOSIS
     Dosage: 1 GRAM
     Route: 048
     Dates: start: 20190417, end: 20190419
  53. METHYLPREDNISOLONE SODIUM SUCCINATE. [Concomitant]
     Active Substance: METHYLPREDNISOLONE SODIUM SUCCINATE
     Dosage: 40 MILLIGRAM
     Route: 041
     Dates: start: 20190509, end: 20190509
  54. NAPROXEN SODIUM. [Concomitant]
     Active Substance: NAPROXEN SODIUM
     Dosage: .275 GRAM
     Route: 041
     Dates: start: 20190509, end: 20190509
  55. TIGECYCLINE. [Concomitant]
     Active Substance: TIGECYCLINE
     Indication: PROPHYLAXIS
     Dosage: 100 MILLIGRAM
     Route: 041
     Dates: start: 20190427, end: 20190509
  56. VORICONAZOLE. [Concomitant]
     Active Substance: VORICONAZOLE
     Indication: PNEUMONIA
  57. INSULIN [Concomitant]
     Active Substance: INSULIN NOS
     Dosage: 32 IU (INTERNATIONAL UNIT)
     Route: 041
     Dates: start: 20190509, end: 20190509
  58. CERNEVIT [Concomitant]
     Active Substance: VITAMINS
     Dosage: 2 IU (INTERNATIONAL UNIT)
     Route: 041
     Dates: start: 20190509, end: 20190509
  59. HYDROXYCARBAMIDE [Concomitant]
     Active Substance: HYDROXYUREA
     Dosage: 4 GRAM
     Route: 048
     Dates: start: 20190509, end: 20190509
  60. NAPROXEN SODIUM. [Concomitant]
     Active Substance: NAPROXEN SODIUM
     Dosage: 20 GRAM
     Route: 041
     Dates: start: 20190507, end: 20190507
  61. PIPERACILLIN AND TAZOBACTAM [Concomitant]
     Active Substance: PIPERACILLIN SODIUM\TAZOBACTAM SODIUM
     Indication: PROPHYLAXIS
     Dosage: 5 GRAM
     Route: 041
     Dates: start: 20190503, end: 20190509
  62. SULPERAZON [Concomitant]
     Active Substance: CEFOPERAZONE SODIUM\SULBACTAM SODIUM
     Dosage: 8 MILLIGRAM
     Route: 041
     Dates: start: 20190428, end: 20190502
  63. VENETOCLAX. [Concomitant]
     Active Substance: VENETOCLAX
     Indication: ACUTE MYELOID LEUKAEMIA
     Route: 048
     Dates: start: 20190501, end: 20190501
  64. METOPROLOL TARTRATE. [Concomitant]
     Active Substance: METOPROLOL TARTRATE
     Indication: CORONARY ARTERY DISEASE
     Dosage: 25 MILLIGRAM
     Route: 048
     Dates: start: 20190424, end: 20190509
  65. GLUCOSE [Concomitant]
     Active Substance: DEXTROSE
     Indication: HYDROTHERAPY
     Dosage: 200 MILLILITER
     Route: 041
     Dates: start: 20190425, end: 20190428
  66. GLUCOSE [Concomitant]
     Active Substance: DEXTROSE
     Indication: DECREASED APPETITE
     Dosage: 400 MILLILITER
     Route: 041
     Dates: start: 20190506, end: 20190507
  67. INSULIN [Concomitant]
     Active Substance: INSULIN NOS
     Indication: PROPHYLAXIS
     Dosage: 16 IU (INTERNATIONAL UNIT)
     Route: 041
     Dates: start: 20190506, end: 20190507
  68. METHYLPREDNISOLONE SODIUM SUCCINATE. [Concomitant]
     Active Substance: METHYLPREDNISOLONE SODIUM SUCCINATE
     Indication: PROPHYLAXIS
     Dosage: 20 MILLIGRAM
     Route: 041
     Dates: start: 20190502, end: 20190502

REACTIONS (2)
  - Sudden cardiac death [Fatal]
  - Metabolic acidosis [Fatal]

NARRATIVE: CASE EVENT DATE: 20190510
